FAERS Safety Report 6460801-5 (Version None)
Quarter: 2009Q4

REPORT INFORMATION
  Report Type: 
  Country: None (occurrence: None)
  Receive Date: 20091130
  Receipt Date: 20091123
  Transmission Date: 20100525
  Serious: Yes (Other)
  Sender: FDA-Public Use
  Company Number: BR-PFIZER INC-2009277817

PATIENT
  Age: 75 Year
  Sex: Female

DRUGS (3)
  1. NORVASC [Suspect]
     Indication: HYPERTENSION
     Dosage: 5 MG, UNK
     Route: 048
     Dates: start: 20070101, end: 20090901
  2. OLMETEC [Suspect]
     Indication: HYPERTENSION
     Dosage: 40MG/ 12,5MG
     Route: 048
     Dates: start: 20081030
  3. OLMETEC [Suspect]
     Dosage: 40MG/ 12,5MG
     Route: 048
     Dates: start: 20091010

REACTIONS (2)
  - ALLERGIC BRONCHITIS [None]
  - BLOOD PRESSURE ABNORMAL [None]
